FAERS Safety Report 9735177 (Version 2)
Quarter: 2013Q4

REPORT INFORMATION
  Report Type: Report from Study
  Country: KR (occurrence: KR)
  Receive Date: 20131206
  Receipt Date: 20131206
  Transmission Date: 20140711
  Serious: Yes (Hospitalization)
  Sender: FDA-Public Use
  Company Number: KR-ASTELLAS-2013JP012451

PATIENT
  Age: 50 Year
  Sex: Male

DRUGS (6)
  1. TACROLIMUS MR4 CAPSULES [Suspect]
     Indication: IMMUNOSUPPRESSANT DRUG THERAPY
     Dosage: 15 MG, UNKNOWN/D
     Route: 048
     Dates: start: 20131001
  2. RAPAMUNE [Suspect]
     Indication: IMMUNOSUPPRESSANT DRUG THERAPY
     Dosage: 2.5 MG, UNKNOWN/D
     Route: 048
     Dates: start: 20131003
  3. YUHAN-ZID [Concomitant]
     Dosage: 300 MG, UID/QD
     Route: 048
     Dates: start: 20131004
  4. PYRIDOXINE HYDROCHLORIDE [Concomitant]
     Dosage: 50 MG, UID/QD
     Route: 048
     Dates: start: 20131004
  5. JOULIE^S SOLUTION [Concomitant]
     Dosage: UNK
     Route: 048
     Dates: start: 20131009
  6. NEBILET [Concomitant]
     Dosage: 5 MG, UID/QD
     Route: 048
     Dates: start: 20131010

REACTIONS (1)
  - Dizziness postural [Recovered/Resolved]
